FAERS Safety Report 7590480-5 (Version None)
Quarter: 2011Q3

REPORT INFORMATION
  Report Type: 
  Country: None (occurrence: None)
  Receive Date: 20110705
  Receipt Date: 20100116
  Transmission Date: 20111222
  Serious: Yes (Death, Hospitalization, Other)
  Sender: FDA-Public Use
  Company Number: US-BAYER-201011170NA

PATIENT
  Age: 66 Year
  Sex: Male
  Weight: 77 kg

DRUGS (13)
  1. HEPARIN [Concomitant]
     Dosage: 10000 UNITS
     Route: 042
     Dates: start: 20101210, end: 20101210
  2. PROPOFOL [Concomitant]
     Dosage: 120 MG, UNK
     Route: 042
     Dates: start: 20101210, end: 20101210
  3. HEPARIN [Concomitant]
     Dosage: 15000 UNITS
     Route: 042
     Dates: start: 20101210, end: 20101210
  4. ACETYLSALICYLIC ACID SRT [Concomitant]
     Dosage: 81 MG, QD
     Route: 048
  5. LIPITOR [Concomitant]
     Dosage: 40 MG, QD
     Route: 048
  6. HEPARIN [Concomitant]
     Dosage: 5000 UNITS
     Route: 042
     Dates: start: 20101210, end: 20101210
  7. ANCEF [Concomitant]
     Dosage: 2 G, UNK
     Route: 042
     Dates: start: 20101210
  8. TRASYLOL [Suspect]
     Indication: CORONARY ARTERY BYPASS
     Dosage: 200 ML, PRIME
     Dates: start: 20021210, end: 20021210
  9. DIOVAN [Concomitant]
     Dosage: 160 MG, QD
     Route: 048
     Dates: start: 20020503
  10. LOPRESSOR [Concomitant]
     Dosage: 50 MG, BID
     Route: 048
  11. HEPARIN [Concomitant]
     Dosage: 32000 UNITS
     Route: 042
     Dates: start: 20101210, end: 20101210
  12. MANNITOL [Concomitant]
     Dosage: 125 MG, PRIME
     Route: 042
     Dates: start: 20101210, end: 20101210
  13. PREDNISONE [Concomitant]
     Dosage: UNK
     Route: 048
     Dates: start: 20101210, end: 20101210

REACTIONS (15)
  - ORGAN FAILURE [None]
  - UNEVALUABLE EVENT [None]
  - MYOCARDIAL INFARCTION [None]
  - PAIN [None]
  - ANHEDONIA [None]
  - RENAL IMPAIRMENT [None]
  - RENAL INJURY [None]
  - CARDIAC DISORDER [None]
  - INJURY [None]
  - RENAL FAILURE [None]
  - CEREBROVASCULAR ACCIDENT [None]
  - DEPRESSION [None]
  - DEATH [None]
  - ANXIETY [None]
  - FEAR [None]
